FAERS Safety Report 14818552 (Version 1)
Quarter: 2018Q2

REPORT INFORMATION
  Report Type: Other
  Country: PH (occurrence: PH)
  Receive Date: 20180427
  Receipt Date: 20180427
  Transmission Date: 20180711
  Serious: Yes (Hospitalization, Other)
  Sender: FDA-Public Use
  Company Number: PH-ACTELION-A-CH2018-171071

PATIENT
  Age: 46 Year
  Sex: Female

DRUGS (5)
  1. RITUXIMAB. [Concomitant]
     Active Substance: RITUXIMAB
  2. NIFEDIPINE. [Concomitant]
     Active Substance: NIFEDIPINE
  3. HEPARIN [Concomitant]
     Active Substance: HEPARIN SODIUM
  4. SILDENAFIL. [Concomitant]
     Active Substance: SILDENAFIL
  5. BOSENTAN. [Suspect]
     Active Substance: BOSENTAN
     Indication: RAYNAUD^S PHENOMENON
     Route: 048

REACTIONS (5)
  - Compartment syndrome [Unknown]
  - Peripheral swelling [Recovering/Resolving]
  - Blood creatinine increased [Unknown]
  - Peripheral ischaemia [Recovering/Resolving]
  - Surgery [Unknown]
